FAERS Safety Report 11083695 (Version 2)
Quarter: 2016Q3

REPORT INFORMATION
  Report Type: Report from Study
  Country: ES (occurrence: ES)
  Receive Date: 20150501
  Receipt Date: 20160808
  Transmission Date: 20161109
  Serious: Yes (Other)
  Sender: FDA-Public Use
  Company Number: ES-JAZZ-JPI-P-012665

PATIENT
  Age: 40 Year
  Sex: Female
  Weight: 93.8 kg

DRUGS (7)
  1. METHYLPHENIDATE. [Concomitant]
     Active Substance: METHYLPHENIDATE
     Indication: SOMNOLENCE
     Dosage: UNK, QD
     Dates: start: 20091210, end: 20100727
  2. THYROXINE [Concomitant]
     Active Substance: LEVOTHYROXINE
     Indication: HYPOTHYROIDISM
     Dosage: UNK
     Dates: start: 2002
  3. XYREM [Suspect]
     Active Substance: SODIUM OXYBATE
     Dosage: 4 G, QD
     Route: 048
     Dates: start: 20100527, end: 20100617
  4. XYREM [Suspect]
     Active Substance: SODIUM OXYBATE
     Dosage: 4.5 G, QD
     Route: 048
     Dates: start: 20100618, end: 20100727
  5. FOLIC ACID. [Concomitant]
     Active Substance: FOLIC ACID
     Indication: PREGNANCY
     Dosage: UNK, QD
     Dates: start: 20100727
  6. DOXYLAMINE [Concomitant]
     Active Substance: DOXYLAMINE
     Indication: PREGNANCY
     Dosage: UNK UNK, QD
     Dates: start: 20100727
  7. XYREM [Suspect]
     Active Substance: SODIUM OXYBATE
     Indication: PRODUCT USED FOR UNKNOWN INDICATION
     Dosage: 6 G, QD
     Route: 048
     Dates: start: 20100311, end: 20100526

REACTIONS (6)
  - Pregnancy [Recovered/Resolved]
  - Cataplexy [Unknown]
  - Amniorrhoea [Recovered/Resolved]
  - Phlebitis [Unknown]
  - Sciatica [Unknown]
  - Gestational diabetes [Recovered/Resolved]

NARRATIVE: CASE EVENT DATE: 2010
